FAERS Safety Report 7190446-3 (Version None)
Quarter: 2010Q4

REPORT INFORMATION
  Report Type: 
  Country: None (occurrence: None)
  Receive Date: 20101213
  Receipt Date: 20101201
  Transmission Date: 20110411
  Serious: Yes (Death, Hospitalization, Other)
  Sender: FDA-Public Use
  Company Number: 022008

PATIENT
  Sex: Female
  Weight: 70 kg

DRUGS (11)
  1. VIMPAT [Suspect]
     Indication: EPILEPSY
     Dosage: (400 MG BID INTRAVENOUS BOLUS)
     Route: 040
     Dates: start: 20101007
  2. LEVETIRACETAM [Concomitant]
  3. METOPROLOL [Concomitant]
  4. AMLODIPINE [Concomitant]
  5. TORASEMID [Concomitant]
  6. RAMIPRIL [Concomitant]
  7. MOLSIDOMIN [Concomitant]
  8. L-THYROXINE /00068001/ [Concomitant]
  9. TRAMADOL HCL [Concomitant]
  10. URAPIDIL [Concomitant]
  11. LORAZEPAM [Concomitant]

REACTIONS (18)
  - ATRIOVENTRICULAR BLOCK COMPLETE [None]
  - BLOOD CHOLESTEROL INCREASED [None]
  - BLOOD GLUCOSE INCREASED [None]
  - BLOOD TRIGLYCERIDES INCREASED [None]
  - CARDIAC ARREST [None]
  - CEREBRAL INFARCTION [None]
  - EOSINOPHIL PERCENTAGE DECREASED [None]
  - GRANULOCYTE COUNT INCREASED [None]
  - HIGH DENSITY LIPOPROTEIN DECREASED [None]
  - LOW DENSITY LIPOPROTEIN INCREASED [None]
  - LYMPHOCYTE PERCENTAGE DECREASED [None]
  - MYOCLONUS [None]
  - PNEUMONIA ASPIRATION [None]
  - QUADRIPARESIS [None]
  - SOMNOLENCE [None]
  - SOPOR [None]
  - STATUS EPILEPTICUS [None]
  - WRONG DRUG ADMINISTERED [None]
